FAERS Safety Report 14474657 (Version 1)
Quarter: 2018Q1

REPORT INFORMATION
  Report Type: Spontaneous
  Country: US (occurrence: US)
  Receive Date: 20180201
  Receipt Date: 20180201
  Transmission Date: 20180509
  Serious: No
  Sender: FDA-Public Use
  Company Number: US-US WORLDMEDS, LLC-USW201707-000962

PATIENT
  Age: 61 Year
  Sex: Female
  Weight: 63.5 kg

DRUGS (4)
  1. MYOBLOC [Suspect]
     Active Substance: RIMABOTULINUMTOXINB
     Indication: PARKINSON^S DISEASE
     Dates: start: 201703
  2. CARBIDOPA/LEVODOPA [Concomitant]
     Active Substance: CARBIDOPA\LEVODOPA
     Indication: PARKINSON^S DISEASE
  3. SKELAXIN [Concomitant]
     Active Substance: METAXALONE
     Indication: DEPRESSION
  4. SKELAXIN [Concomitant]
     Active Substance: METAXALONE
     Indication: ANXIETY

REACTIONS (1)
  - Product use in unapproved indication [Unknown]
